FAERS Safety Report 24033854 (Version 2)
Quarter: 2024Q3

REPORT INFORMATION
  Report Type: Spontaneous
  Country: FR (occurrence: None)
  Receive Date: 20240701
  Receipt Date: 20240816
  Transmission Date: 20241016
  Serious: Yes (Death, Other)
  Sender: ASTRAZENECA
  Company Number: 2024A148993

PATIENT
  Age: 23821 Day
  Sex: Male
  Weight: 95 kg

DRUGS (5)
  1. ACALABRUTINIB [Suspect]
     Active Substance: ACALABRUTINIB
     Indication: Chronic lymphocytic leukaemia
     Route: 048
     Dates: start: 20231127
  2. ACALABRUTINIB [Concomitant]
     Active Substance: ACALABRUTINIB
  3. HTA [Concomitant]
  4. METFORMIN [Concomitant]
     Active Substance: METFORMIN HYDROCHLORIDE
  5. SUMAGUTIDE [Concomitant]

REACTIONS (4)
  - Acute respiratory failure [Fatal]
  - Thrombocytopenia [Fatal]
  - Acute kidney injury [Fatal]
  - Haemoptysis [Fatal]

NARRATIVE: CASE EVENT DATE: 20240613
